FAERS Safety Report 6183742-X (Version None)
Quarter: 2009Q2

REPORT INFORMATION
  Report Type: 
  Country: None (occurrence: None)
  Receive Date: 20090508
  Receipt Date: 20090508
  Transmission Date: 20091009
  Serious: Yes (Other)
  Sender: FDA-Public Use
  Company Number: US-PFIZER INC-2009186598

PATIENT
  Sex: Female
  Weight: 58.957 kg

DRUGS (11)
  1. CHANTIX [Suspect]
     Indication: SMOKING CESSATION THERAPY
     Dates: start: 20090130
  2. XOPENEX [Suspect]
     Dosage: UNK
  3. COMBIVENT [Suspect]
     Dosage: UNK
  4. POTASSIUM [Concomitant]
     Dosage: UNK
  5. ACETYLSALICYLIC ACID [Concomitant]
     Dosage: UNK
  6. NORVASC [Concomitant]
     Dosage: UNK
  7. ZOCOR [Concomitant]
     Dosage: UNK
  8. LEXAPRO [Concomitant]
     Dosage: UNK
  9. VESICARE [Concomitant]
     Dosage: UNK
  10. LOPRESSOR [Concomitant]
     Dosage: UNK
  11. MONTELUKAST [Concomitant]
     Dosage: UNK

REACTIONS (4)
  - DYSPNOEA [None]
  - HYPOACUSIS [None]
  - MUSCLE TWITCHING [None]
  - TREMOR [None]
